FAERS Safety Report 5001726-1 (Version None)
Quarter: 2006Q2

REPORT INFORMATION
  Report Type: 
  Country: None (occurrence: None)
  Receive Date: 20060512
  Receipt Date: 20060512
  Transmission Date: 20061013
  Serious: Yes (Hospitalization)
  Sender: FDA-Public Use
  Company Number: None

PATIENT
  Sex: Male
  Weight: 100.3 kg

DRUGS (13)
  1. GLIADEL [Suspect]
     Indication: GLIOBLASTOMA MULTIFORME
     Dosage: 7.7 MG PER WAFER - MAX OF 8
     Dates: start: 20060213
  2. O6-BENZYLGUANINE (O6BG) [Suspect]
     Indication: GLIOBLASTOMA MULTIFORME
     Dosage: 30 MG/M2 INFUSION X 5 DAYS
     Dates: start: 20060213, end: 20060217
  3. OXYCONTIN [Concomitant]
  4. DEXAMETHASONE [Concomitant]
  5. DEPAKENE [Concomitant]
  6. RISPERDAL [Concomitant]
  7. KLONOPIN [Concomitant]
  8. THIAMINE [Concomitant]
  9. FOLIC ACID [Concomitant]
  10. MULTI-VITAMIN [Concomitant]
  11. AVAPRO [Concomitant]
  12. ZOLOFT [Concomitant]
  13. SENOKOT [Concomitant]

REACTIONS (8)
  - COUGH [None]
  - DISEASE PROGRESSION [None]
  - HALLUCINATION [None]
  - MENTAL STATUS CHANGES [None]
  - PNEUMONIA [None]
  - STAPHYLOCOCCAL INFECTION [None]
  - UNEVALUABLE EVENT [None]
  - VENOOCCLUSIVE DISEASE [None]
